FAERS Safety Report 13288415 (Version 2)
Quarter: 2017Q1

REPORT INFORMATION
  Report Type: Report from Study
  Country: None (occurrence: CH)
  Receive Date: 20170302
  Receipt Date: 20170309
  Transmission Date: 20170428
  Serious: Yes (Death, Hospitalization)
  Sender: FDA-Public Use
  Company Number: CH-ABBVIE-17P-151-1889632-00

PATIENT
  Age: 80 Year
  Sex: Male

DRUGS (1)
  1. DUODOPA [Suspect]
     Active Substance: CARBIDOPA\LEVODOPA
     Indication: PARKINSON^S DISEASE
     Dosage: MORNING DOSE: 9,5ML, CONTINUOUS RATE DAY: 7,0ML/H, EXTRA DOSE: 3,5ML 16H THERAPY
     Route: 050
     Dates: start: 20170110

REACTIONS (5)
  - Weight decreased [Unknown]
  - Nasopharyngitis [Unknown]
  - On and off phenomenon [Recovering/Resolving]
  - Pneumonia [Fatal]
  - General physical health deterioration [Not Recovered/Not Resolved]

NARRATIVE: CASE EVENT DATE: 201701
